FAERS Safety Report 12367667 (Version 1)
Quarter: 2016Q2

REPORT INFORMATION
  Report Type: Spontaneous
  Country: GB (occurrence: GB)
  Receive Date: 20160513
  Receipt Date: 20160513
  Transmission Date: 20160815
  Serious: Yes (Other)
  Sender: FDA-Public Use
  Company Number: GB-PFIZER INC-2016255544

PATIENT
  Age: 55 Year
  Sex: Male
  Weight: 88.9 kg

DRUGS (40)
  1. RAMIPRIL. [Concomitant]
     Active Substance: RAMIPRIL
     Indication: BACK PAIN
  2. SERTRALINE HCL [Suspect]
     Active Substance: SERTRALINE HYDROCHLORIDE
     Indication: DEPRESSION
     Dosage: 50 MG, UNK
     Route: 048
     Dates: start: 20160314, end: 20160325
  3. ABATACEPT [Concomitant]
     Active Substance: ABATACEPT
     Indication: RHEUMATOID ARTHRITIS
     Dosage: UNK
  4. ABATACEPT [Concomitant]
     Active Substance: ABATACEPT
     Indication: NEUROPATHY PERIPHERAL
  5. CETIRIZINE [Concomitant]
     Active Substance: CETIRIZINE HYDROCHLORIDE
     Indication: RHEUMATOID ARTHRITIS
     Dosage: UNK
  6. DIHYDROCODEINE [Concomitant]
     Active Substance: DIHYDROCODEINE
     Indication: RHEUMATOID ARTHRITIS
     Dosage: UNK
  7. DIHYDROCODEINE [Concomitant]
     Active Substance: DIHYDROCODEINE
     Indication: NEUROPATHY PERIPHERAL
  8. INDAPAMIDE. [Concomitant]
     Active Substance: INDAPAMIDE
     Indication: BACK PAIN
  9. NITRAZEPAM [Concomitant]
     Active Substance: NITRAZEPAM
     Indication: NEUROPATHY PERIPHERAL
  10. PREDNISOLONE. [Concomitant]
     Active Substance: PREDNISOLONE
     Indication: BACK PAIN
  11. ADCAL D3 [Concomitant]
     Active Substance: CALCIUM CARBONATE\CHOLECALCIFEROL
     Indication: RHEUMATOID ARTHRITIS
     Dosage: UNK
  12. ADCAL D3 [Concomitant]
     Active Substance: CALCIUM CARBONATE\CHOLECALCIFEROL
     Indication: BACK PAIN
  13. ARCOXIA [Concomitant]
     Active Substance: ETORICOXIB
     Indication: RHEUMATOID ARTHRITIS
     Dosage: UNK
  14. NITRAZEPAM [Concomitant]
     Active Substance: NITRAZEPAM
     Indication: BACK PAIN
  15. PYRIDOXINE [Concomitant]
     Active Substance: PYRIDOXINE
     Indication: RHEUMATOID ARTHRITIS
     Dosage: UNK
  16. PYRIDOXINE [Concomitant]
     Active Substance: PYRIDOXINE
     Indication: NEUROPATHY PERIPHERAL
  17. RAMIPRIL. [Concomitant]
     Active Substance: RAMIPRIL
     Indication: RHEUMATOID ARTHRITIS
     Dosage: UNK
  18. RAMIPRIL. [Concomitant]
     Active Substance: RAMIPRIL
     Indication: NEUROPATHY PERIPHERAL
  19. ADCAL D3 [Concomitant]
     Active Substance: CALCIUM CARBONATE\CHOLECALCIFEROL
     Indication: NEUROPATHY PERIPHERAL
  20. ARCOXIA [Concomitant]
     Active Substance: ETORICOXIB
     Indication: NEUROPATHY PERIPHERAL
  21. COCODAMOL [Concomitant]
     Active Substance: ACETAMINOPHEN\CODEINE PHOSPHATE
     Indication: BACK PAIN
  22. DIHYDROCODEINE [Concomitant]
     Active Substance: DIHYDROCODEINE
     Indication: BACK PAIN
  23. LANSOPRAZOLE. [Concomitant]
     Active Substance: LANSOPRAZOLE
     Indication: RHEUMATOID ARTHRITIS
     Dosage: UNK
  24. NITRAZEPAM [Concomitant]
     Active Substance: NITRAZEPAM
     Indication: RHEUMATOID ARTHRITIS
     Dosage: UNK
  25. PREDNISOLONE. [Concomitant]
     Active Substance: PREDNISOLONE
     Indication: RHEUMATOID ARTHRITIS
     Dosage: UNK
  26. CETIRIZINE [Concomitant]
     Active Substance: CETIRIZINE HYDROCHLORIDE
     Indication: BACK PAIN
  27. CETIRIZINE [Concomitant]
     Active Substance: CETIRIZINE HYDROCHLORIDE
     Indication: NEUROPATHY PERIPHERAL
  28. COCODAMOL [Concomitant]
     Active Substance: ACETAMINOPHEN\CODEINE PHOSPHATE
     Indication: NEUROPATHY PERIPHERAL
  29. ORAMORPH [Concomitant]
     Active Substance: MORPHINE SULFATE
     Indication: NEUROPATHY PERIPHERAL
  30. PREDNISOLONE. [Concomitant]
     Active Substance: PREDNISOLONE
     Indication: NEUROPATHY PERIPHERAL
  31. PYRIDOXINE [Concomitant]
     Active Substance: PYRIDOXINE
     Indication: BACK PAIN
  32. ARCOXIA [Concomitant]
     Active Substance: ETORICOXIB
     Indication: BACK PAIN
  33. COCODAMOL [Concomitant]
     Active Substance: ACETAMINOPHEN\CODEINE PHOSPHATE
     Indication: RHEUMATOID ARTHRITIS
     Dosage: UNK
  34. LANSOPRAZOLE. [Concomitant]
     Active Substance: LANSOPRAZOLE
     Indication: BACK PAIN
  35. LANSOPRAZOLE. [Concomitant]
     Active Substance: LANSOPRAZOLE
     Indication: NEUROPATHY PERIPHERAL
  36. ORAMORPH [Concomitant]
     Active Substance: MORPHINE SULFATE
     Indication: RHEUMATOID ARTHRITIS
     Dosage: UNK
  37. ORAMORPH [Concomitant]
     Active Substance: MORPHINE SULFATE
     Indication: BACK PAIN
  38. ABATACEPT [Concomitant]
     Active Substance: ABATACEPT
     Indication: BACK PAIN
  39. INDAPAMIDE. [Concomitant]
     Active Substance: INDAPAMIDE
     Indication: RHEUMATOID ARTHRITIS
     Dosage: UNK
  40. INDAPAMIDE. [Concomitant]
     Active Substance: INDAPAMIDE
     Indication: NEUROPATHY PERIPHERAL

REACTIONS (8)
  - Dissociation [Unknown]
  - Fatigue [Recovered/Resolved]
  - Hypersomnia [Unknown]
  - Mental impairment [Unknown]
  - Dizziness [Unknown]
  - Impaired driving ability [Unknown]
  - Dysarthria [Unknown]
  - Activities of daily living impaired [Unknown]

NARRATIVE: CASE EVENT DATE: 20160316
